FAERS Safety Report 4353426-9 (Version None)
Quarter: 2004Q2

REPORT INFORMATION
  Report Type: 
  Country: None (occurrence: None)
  Receive Date: 20040504
  Receipt Date: 20040414
  Transmission Date: 20050107
  Serious: Yes (Other)
  Sender: FDA-Public Use
  Company Number: 601217

PATIENT
  Age: 2 Month
  Sex: Female
  Weight: 7.9 kg

DRUGS (13)
  1. HUMAN ALBUMIN GRIFOLS 20% [Suspect]
     Indication: HYPOTENSION
     Dosage: 10  ML; ONCE; INTRAVENOUS
     Route: 042
     Dates: start: 20020521, end: 20020521
  2. REB BLOOD CELLS (RED BLOOD CELLS) [Suspect]
     Indication: HYPOTENSION
     Dosage: 10 ML; ONCE; INTRAVENOUS
     Route: 042
     Dates: start: 20020801, end: 20020801
  3. INOVAN [Concomitant]
  4. DOBUTREX [Concomitant]
  5. LIPLE [Concomitant]
  6. KETAMINE HCL [Concomitant]
  7. VECURONIUM BROMIDE [Concomitant]
  8. MIDAZOLAM HCL [Concomitant]
  9. LASIX [Concomitant]
  10. AMIKACIN SULFATE [Concomitant]
  11. VICCILLIN [Concomitant]
  12. MODACIN [Concomitant]
  13. PENTCILLIN [Concomitant]

REACTIONS (4)
  - ASPARTATE AMINOTRANSFERASE INCREASED [None]
  - BLOOD LACTATE DEHYDROGENASE INCREASED [None]
  - HEPATITIS C ANTIBODY POSITIVE [None]
  - NOSOCOMIAL INFECTION [None]
